FAERS Safety Report 9698601 (Version 2)
Quarter: 2014Q2

REPORT INFORMATION
  Report Type: Spontaneous
  Country: JP (occurrence: JP)
  Receive Date: 20131120
  Receipt Date: 20140501
  Transmission Date: 20141212
  Serious: No
  Sender: FDA-Public Use
  Company Number: JP-VIIV HEALTHCARE LIMITED-B0945852A

PATIENT
  Age: 4 Decade
  Sex: Male

DRUGS (3)
  1. CELSENTRI [Suspect]
     Indication: HIV INFECTION
     Dosage: 300MG TWICE PER DAY
     Route: 048
     Dates: start: 201210, end: 201305
  2. ISENTRESS [Concomitant]
     Route: 048
     Dates: start: 201210, end: 2013
  3. TRUVADA [Concomitant]
     Route: 048
     Dates: start: 2013

REACTIONS (2)
  - Atopy [Recovering/Resolving]
  - Eosinophilia [Recovered/Resolved]
